FAERS Safety Report 8377102-0 (Version None)
Quarter: 2012Q2

REPORT INFORMATION
  Report Type: 
  Country: None (occurrence: None)
  Receive Date: 20120522
  Receipt Date: 20120507
  Transmission Date: 20120825
  Serious: Yes (Other)
  Sender: FDA-Public Use
  Company Number: US-JUTA GMBH-2012-07933

PATIENT
  Sex: Female

DRUGS (6)
  1. THYROID TAB [Concomitant]
     Indication: PRODUCT USED FOR UNKNOWN INDICATION
     Dosage: UNK
     Route: 065
  2. PROMETRIUM [Concomitant]
     Indication: PRODUCT USED FOR UNKNOWN INDICATION
     Dosage: UNK
     Route: 065
  3. METFORMIN HCL [Suspect]
     Indication: POLYCYSTIC OVARIES
     Dosage: 500 MG, BID
     Route: 048
     Dates: start: 20120101
  4. METFORMIN HCL [Suspect]
     Dosage: 1000 MG, BID
     Route: 048
     Dates: start: 20120101
  5. CLOMID [Concomitant]
     Indication: PRODUCT USED FOR UNKNOWN INDICATION
     Dosage: UNK
     Route: 065
  6. KALBITOR [Suspect]
     Indication: HEREDITARY ANGIOEDEMA
     Dosage: 30 MG, X1
     Route: 058
     Dates: start: 20111229, end: 20111229

REACTIONS (2)
  - DRUG DISPENSING ERROR [None]
  - ABORTION SPONTANEOUS [None]
